FAERS Safety Report 16043123 (Version 2)
Quarter: 2019Q1

REPORT INFORMATION
  Report Type: Spontaneous
  Country: JP (occurrence: JP)
  Receive Date: 20190306
  Receipt Date: 20190314
  Transmission Date: 20190418
  Serious: Yes (Other)
  Sender: FDA-Public Use
  Company Number: JP-MYLANLABS-2019M1017898

PATIENT
  Age: 7 Decade
  Sex: Female

DRUGS (2)
  1. CARBOPLATIN. [Suspect]
     Active Substance: CARBOPLATIN
     Indication: LUNG ADENOCARCINOMA
     Route: 065
  2. ALIMTA [Suspect]
     Active Substance: PEMETREXED DISODIUM
     Indication: LUNG ADENOCARCINOMA
     Route: 065

REACTIONS (4)
  - Chills [Recovering/Resolving]
  - Pulmonary oedema [Recovering/Resolving]
  - Post-tussive vomiting [Recovering/Resolving]
  - Pyrexia [Recovering/Resolving]
